FAERS Safety Report 12001260 (Version 1)
Quarter: 2016Q1

REPORT INFORMATION
  Report Type: Spontaneous
  Country: MX (occurrence: MX)
  Receive Date: 20160204
  Receipt Date: 20160204
  Transmission Date: 20160526
  Serious: Yes (Other)
  Sender: FDA-Public Use
  Company Number: MX-ELI_LILLY_AND_COMPANY-MX201601010686

PATIENT
  Sex: Female

DRUGS (1)
  1. EVISTA [Suspect]
     Active Substance: RALOXIFENE HYDROCHLORIDE
     Indication: OSTEOPOROSIS PROPHYLAXIS
     Dosage: 60 MG, UNKNOWN
     Route: 065
     Dates: start: 201511

REACTIONS (5)
  - Pain in extremity [Unknown]
  - Dermatitis allergic [Unknown]
  - Chest pain [Unknown]
  - Pain [Unknown]
  - Neck pain [Unknown]
